FAERS Safety Report 12980056 (Version 10)
Quarter: 2018Q3

REPORT INFORMATION
  Report Type: Report from Study
  Country: CA (occurrence: CA)
  Receive Date: 20161128
  Receipt Date: 20180924
  Transmission Date: 20181010
  Serious: Yes (Hospitalization, Other)
  Sender: FDA-Public Use
  Company Number: CA-BRISTOL-MYERS SQUIBB COMPANY-BMS-2016-046300

PATIENT
  Age: 60 Year
  Sex: Female

DRUGS (6)
  1. NAPROXEN. [Concomitant]
     Active Substance: NAPROXEN
     Indication: PRODUCT USED FOR UNKNOWN INDICATION
     Route: 065
  2. ABATACEPT [Suspect]
     Active Substance: ABATACEPT
     Indication: RHEUMATOID ARTHRITIS
     Dosage: 1000 MG, Q4WK
     Route: 042
     Dates: start: 20150219
  3. VALSARTAN. [Concomitant]
     Active Substance: VALSARTAN
     Indication: PRODUCT USED FOR UNKNOWN INDICATION
     Route: 065
  4. DILTIAZEM. [Concomitant]
     Active Substance: DILTIAZEM
     Indication: PRODUCT USED FOR UNKNOWN INDICATION
     Route: 065
  5. PREDNISONE. [Concomitant]
     Active Substance: PREDNISONE
     Indication: PRODUCT USED FOR UNKNOWN INDICATION
     Route: 065
  6. FOSAMAX [Concomitant]
     Active Substance: ALENDRONATE SODIUM
     Indication: PRODUCT USED FOR UNKNOWN INDICATION
     Route: 065

REACTIONS (21)
  - Hospitalisation [Not Recovered/Not Resolved]
  - Arthralgia [Unknown]
  - Blood pressure diastolic increased [Unknown]
  - Pain [Unknown]
  - Stent placement [Unknown]
  - Sciatica [Unknown]
  - Nasopharyngitis [Recovering/Resolving]
  - Nephrolithiasis [Not Recovered/Not Resolved]
  - Muscle spasms [Unknown]
  - Aspartate aminotransferase increased [Recovered/Resolved]
  - Cough [Recovering/Resolving]
  - Kidney infection [Unknown]
  - Cystitis [Not Recovered/Not Resolved]
  - Fibromyalgia [Unknown]
  - Alanine aminotransferase increased [Recovered/Resolved]
  - Osteoarthritis [Not Recovered/Not Resolved]
  - Rheumatoid arthritis [Recovering/Resolving]
  - Blood pressure diastolic decreased [Unknown]
  - Urinary tract infection [Unknown]
  - Arthralgia [Not Recovered/Not Resolved]
  - Liver function test increased [Unknown]

NARRATIVE: CASE EVENT DATE: 20160609
